FAERS Safety Report 5711123-9 (Version None)
Quarter: 2008Q2

REPORT INFORMATION
  Report Type: 
  Country: None (occurrence: None)
  Receive Date: 20080417
  Receipt Date: 20080417
  Transmission Date: 20081010
  Serious: Yes (Other)
  Sender: FDA-Public Use
  Company Number: None

PATIENT
  Age: 51 Year
  Sex: Female
  Weight: 66.6788 kg

DRUGS (2)
  1. LYRICA [Suspect]
     Indication: FIBROMYALGIA
     Dosage: 50MG 1X DAILY PO
     Route: 048
     Dates: start: 20080301, end: 20080407
  2. LYRICA [Suspect]
     Indication: FIBROMYALGIA
     Dosage: 50MG 2X DAILY PO
     Route: 048
     Dates: start: 20080408, end: 20080415

REACTIONS (7)
  - AMNESIA [None]
  - DRUG INTERACTION [None]
  - EUPHORIC MOOD [None]
  - INSOMNIA [None]
  - MOOD SWINGS [None]
  - NIGHTMARE [None]
  - PALPITATIONS [None]
